FAERS Safety Report 6056177-8 (Version None)
Quarter: 2009Q1

REPORT INFORMATION
  Report Type: 
  Country: None (occurrence: None)
  Receive Date: 20090123
  Receipt Date: 20090123
  Transmission Date: 20090719
  Serious: Yes (Hospitalization)
  Sender: FDA-Public Use
  Company Number: None

PATIENT
  Sex: Male
  Weight: 92.1 kg

DRUGS (8)
  1. TAXOTERE [Suspect]
     Indication: PROSTATE CANCER
     Dosage: 75MG/M2 IV 1 HR Q3WKS
     Route: 042
     Dates: start: 20081117
  2. PREDNISONE [Suspect]
     Indication: PROSTATE CANCER
     Dosage: 5 MG ORALLY TWICE A DAY
     Route: 048
     Dates: start: 20081116
  3. DEXAMETHASONE [Concomitant]
  4. ZOMETA [Concomitant]
  5. LUPRON [Concomitant]
  6. CRESTOR [Concomitant]
  7. DIOVAN HCT [Concomitant]
  8. MORPHINE [Concomitant]

REACTIONS (4)
  - DIARRHOEA [None]
  - ESCHERICHIA URINARY TRACT INFECTION [None]
  - NAUSEA [None]
  - VOMITING [None]
